FAERS Safety Report 20963155 (Version 4)
Quarter: 2024Q4

REPORT INFORMATION
  Report Type: Spontaneous
  Country: GB (occurrence: GB)
  Receive Date: 20220615
  Receipt Date: 20241205
  Transmission Date: 20250114
  Serious: Yes (Other)
  Sender: TAKEDA
  Company Number: GB-TAKEDA-2022TUS038814

PATIENT
  Age: 58 Year
  Sex: Male

DRUGS (2)
  1. ENTYVIO [Suspect]
     Active Substance: VEDOLIZUMAB
     Indication: Colitis ulcerative
     Dosage: 300 MILLIGRAM
  2. ENTYVIO [Suspect]
     Active Substance: VEDOLIZUMAB
     Dosage: 300 MILLIGRAM

REACTIONS (6)
  - Cardiac ablation [Unknown]
  - Tympanic membrane perforation [Unknown]
  - Poor venous access [Unknown]
  - Chest pain [Unknown]
  - Nasopharyngitis [Unknown]
  - Back injury [Not Recovered/Not Resolved]
